FAERS Safety Report 15751111 (Version 1)
Quarter: 2018Q4

REPORT INFORMATION
  Report Type: Spontaneous
  Country: US (occurrence: US)
  Receive Date: 20181221
  Receipt Date: 20181221
  Transmission Date: 20190205
  Serious: No
  Sender: FDA-Public Use
  Company Number: US-THERAPEUTICSMD-2018TMD00147

PATIENT
  Sex: Female
  Weight: 57.6 kg

DRUGS (1)
  1. IMVEXXY [Suspect]
     Active Substance: ESTRADIOL
     Indication: SEXUAL DYSFUNCTION
     Dosage: 10 ?G, 1X/DAY IN THE MORNING
     Route: 067
     Dates: start: 201808, end: 20180902

REACTIONS (3)
  - Vaginal discharge [Recovered/Resolved]
  - Pain [Recovered/Resolved]
  - Off label use [Recovered/Resolved]

NARRATIVE: CASE EVENT DATE: 2018
